FAERS Safety Report 24647809 (Version 2)
Quarter: 2024Q4

REPORT INFORMATION
  Report Type: Spontaneous
  Country: ES (occurrence: ES)
  Receive Date: 20241121
  Receipt Date: 20241127
  Transmission Date: 20250115
  Serious: Yes (Life-Threatening, Other)
  Sender: PFIZER
  Company Number: ES-PFIZER INC-PV202400150987

PATIENT
  Age: 63 Year
  Sex: Male

DRUGS (1)
  1. SUNITINIB MALATE [Suspect]
     Active Substance: SUNITINIB MALATE
     Indication: Renal cell carcinoma
     Dosage: UNK

REACTIONS (1)
  - Osteonecrosis of jaw [Unknown]
